FAERS Safety Report 18270600 (Version 1)
Quarter: 2020Q3

REPORT INFORMATION
  Report Type: Report from Study
  Country: None (occurrence: US)
  Receive Date: 20200916
  Receipt Date: 20200916
  Transmission Date: 20201103
  Serious: Yes (Hospitalization, Other)
  Sender: FDA-Public Use
  Company Number: US-ABBVIE-20K-163-3507824-00

PATIENT
  Age: 48 Year
  Sex: Female
  Weight: 59.02 kg

DRUGS (2)
  1. HUMIRA [Suspect]
     Active Substance: ADALIMUMAB
     Route: 058
  2. HUMIRA [Suspect]
     Active Substance: ADALIMUMAB
     Indication: PSORIASIS
     Route: 058
     Dates: start: 2014

REACTIONS (11)
  - Tibia fracture [Recovered/Resolved]
  - Hip fracture [Recovered/Resolved]
  - Arthropathy [Recovering/Resolving]
  - Hip fracture [Unknown]
  - Tenoplasty [Recovered/Resolved]
  - Fracture [Unknown]
  - Knee arthroplasty [Unknown]
  - Arthritis infective [Recovered/Resolved]
  - Osteoporosis [Unknown]
  - Coagulopathy [Not Recovered/Not Resolved]
  - Peroneal nerve palsy [Recovered/Resolved]

NARRATIVE: CASE EVENT DATE: 201710
